FAERS Safety Report 4522260-9 (Version None)
Quarter: 2004Q4

REPORT INFORMATION
  Report Type: 
  Country: None (occurrence: None)
  Receive Date: 20041207
  Receipt Date: 20041124
  Transmission Date: 20050328
  Serious: Yes (Death, Congenital Anomaly)
  Sender: FDA-Public Use
  Company Number: 2004101077

PATIENT
  Sex: Male

DRUGS (1)
  1. DOSTINEX [Suspect]
     Indication: ILL-DEFINED DISORDER
     Dosage: 0.5 MG, TWICE  WEEKLY, ORAL

REACTIONS (11)
  - ANORECTAL DISORDER [None]
  - CAESAREAN SECTION [None]
  - CLEFT PALATE [None]
  - CRYPTORCHISM [None]
  - DRUG EXPOSURE DURING PREGNANCY [None]
  - HYPOSPADIAS [None]
  - HYPOTELORISM OF ORBIT [None]
  - NEONATAL RESPIRATORY FAILURE [None]
  - PREGNANCY [None]
  - PREMATURE SEPARATION OF PLACENTA [None]
  - SYNDACTYLY [None]
